FAERS Safety Report 9148594 (Version 3)
Quarter: 2013Q2

REPORT INFORMATION
  Report Type: Spontaneous
  Country: US (occurrence: US)
  Receive Date: 20130308
  Receipt Date: 20130402
  Transmission Date: 20140414
  Serious: Yes (Hospitalization)
  Sender: FDA-Public Use
  Company Number: US-PERRIGO-13US002359

PATIENT
  Age: 54 Year
  Sex: Female
  Weight: 93.42 kg

DRUGS (3)
  1. GUAIFENESIN 20 MG/ML TUSSIN CS 310 [Suspect]
     Indication: NASOPHARYNGITIS
     Dosage: 400 MG, SINGLE
     Route: 048
     Dates: start: 20130215, end: 20130215
  2. GUAIFENESIN 20 MG/ML TUSSIN CS 310 [Suspect]
     Indication: BRONCHITIS
     Dosage: UNKNOWN, UNKNOWN
     Route: 048
  3. DILANTIN [Concomitant]
     Indication: CONVULSION
     Dosage: 600 MG, QD
     Route: 065
     Dates: start: 2012

REACTIONS (1)
  - Convulsion [Recovered/Resolved]
